FAERS Safety Report 24756054 (Version 1)
Quarter: 2024Q4

REPORT INFORMATION
  Report Type: Report from Study
  Country: US (occurrence: US)
  Receive Date: 20241219
  Receipt Date: 20241219
  Transmission Date: 20250115
  Serious: Yes (Other)
  Sender: ABBVIE
  Company Number: US-ABBVIE-5748381

PATIENT
  Sex: Female

DRUGS (1)
  1. HUMIRA [Suspect]
     Active Substance: ADALIMUMAB
     Indication: Product used for unknown indication
     Route: 058
     Dates: start: 20211012, end: 20240812

REACTIONS (3)
  - Systemic lupus erythematosus [Unknown]
  - Lipids decreased [Unknown]
  - Lipoprotein-associated phospholipase A2 increased [Unknown]
